FAERS Safety Report 13112597 (Version 1)
Quarter: 2017Q1

REPORT INFORMATION
  Report Type: Spontaneous
  Country: US (occurrence: US)
  Receive Date: 20170112
  Receipt Date: 20170112
  Transmission Date: 20170428
  Serious: Yes (Other)
  Sender: FDA-Public Use
  Company Number: None

PATIENT
  Age: 62 Year
  Sex: Female
  Weight: 60.75 kg

DRUGS (12)
  1. GLUCOSAMINE [Concomitant]
     Active Substance: GLUCOSAMINE
  2. COQ10 [Concomitant]
     Active Substance: UBIDECARENONE
  3. CRANBERRY. [Concomitant]
     Active Substance: CRANBERRY
  4. OFLAXACIN OPHTHALMIC SOLUTION RISING PHARMACEUTICALS [Suspect]
     Active Substance: OFLOXACIN
     Indication: CATARACT OPERATION
     Dosage: ?          QUANTITY:31 DROP(S);?
     Route: 047
     Dates: start: 20170102, end: 20170110
  5. RED YEAST RICE [Concomitant]
     Active Substance: DIETARY SUPPLEMENT
  6. FLAXSEED [Concomitant]
     Active Substance: FLAX SEED
  7. PREDNISOLONE. [Concomitant]
     Active Substance: PREDNISOLONE
  8. ASPIRIN. [Concomitant]
     Active Substance: ASPIRIN
  9. TYLENOL [Concomitant]
     Active Substance: ACETAMINOPHEN
  10. LYSINE [Concomitant]
     Active Substance: LYSINE
  11. FISH OIL [Concomitant]
     Active Substance: FISH OIL
  12. CALCIUM [Concomitant]
     Active Substance: CALCIUM

REACTIONS (1)
  - Cough [None]

NARRATIVE: CASE EVENT DATE: 20170103
